FAERS Safety Report 10066929 (Version 1)
Quarter: 2014Q2

REPORT INFORMATION
  Report Type: Spontaneous
  Country: FR (occurrence: FR)
  Receive Date: 20140409
  Receipt Date: 20140409
  Transmission Date: 20141212
  Serious: Yes (Death)
  Sender: FDA-Public Use
  Company Number: FR-ROCHE-1379370

PATIENT
  Age: 58 Year
  Sex: Male

DRUGS (9)
  1. PEGASYS [Suspect]
     Indication: HEPATITIS C
     Route: 058
     Dates: start: 20140130
  2. RIBAVIRIN [Suspect]
     Indication: HEPATITIS C
     Route: 048
     Dates: start: 20140130
  3. SOFOSBUVIR [Suspect]
     Indication: HEPATITIS C
     Route: 048
     Dates: start: 20140130
  4. CARDENSIEL [Concomitant]
  5. SPIRONOLACTONE [Concomitant]
  6. ATORVASTATIN [Concomitant]
  7. PANTOPRAZOLE [Concomitant]
  8. CORDIPATCH [Concomitant]
  9. PLAVIX [Concomitant]

REACTIONS (1)
  - Death [Fatal]
